FAERS Safety Report 6499029-1 (Version None)
Quarter: 2009Q4

REPORT INFORMATION
  Report Type: 
  Country: None (occurrence: None)
  Receive Date: 20091215
  Receipt Date: 20091203
  Transmission Date: 20100525
  Serious: Yes (Hospitalization)
  Sender: FDA-Public Use
  Company Number: US-SANOFI-AVENTIS-2009SA003172

PATIENT
  Age: 64 Year
  Sex: Male
  Weight: 88.9 kg

DRUGS (11)
  1. OXALIPLATIN [Suspect]
     Route: 041
     Dates: start: 20091020, end: 20091020
  2. OXALIPLATIN [Suspect]
     Route: 041
     Dates: start: 20091110, end: 20091110
  3. TAXOTERE [Suspect]
     Route: 041
     Dates: start: 20091020, end: 20091020
  4. TAXOTERE [Suspect]
     Route: 041
     Dates: start: 20091110, end: 20091110
  5. ERBITUX [Suspect]
     Route: 042
     Dates: start: 20091020, end: 20091020
  6. ERBITUX [Suspect]
     Route: 042
     Dates: start: 20091110, end: 20091110
  7. MAGNESIUM SULFATE [Concomitant]
     Dates: start: 20091110
  8. CALCIUM GLUCONATE [Concomitant]
     Dates: start: 20091110
  9. ALOXI [Concomitant]
     Dates: start: 20091110
  10. DEXAMETHASONE TAB [Concomitant]
     Dates: start: 20091110
  11. SANDOSTATIN LAR [Concomitant]
     Dates: start: 20091110

REACTIONS (3)
  - ATRIAL FIBRILLATION [None]
  - DIARRHOEA [None]
  - SYNCOPE [None]
